FAERS Safety Report 6397666-6 (Version None)
Quarter: 2009Q4

REPORT INFORMATION
  Report Type: 
  Country: None (occurrence: None)
  Receive Date: 20091012
  Receipt Date: 20090930
  Transmission Date: 20100525
  Serious: Yes (Hospitalization)
  Sender: FDA-Public Use
  Company Number: JP-PFIZER INC-2009264737

PATIENT
  Age: 70 Year

DRUGS (9)
  1. ZITHROMAX [Suspect]
     Indication: BRONCHITIS
     Dosage: 500 MG, 1X/DAY
     Route: 048
     Dates: start: 20090729, end: 20090731
  2. TEGAFUR/GIMERACIL/OTERACIL POTASSIUM [Suspect]
     Indication: GASTRIC CANCER
     Dosage: 20 MG, 2X/DAY
     Route: 048
     Dates: start: 20090128, end: 20090811
  3. SUNRYTHM [Concomitant]
     Dosage: UNK
     Route: 048
  4. ASPIRIN [Concomitant]
     Dosage: UNK
     Route: 048
     Dates: start: 20090128
  5. ALLELOCK [Concomitant]
     Dosage: UNK
     Route: 048
     Dates: start: 20090107
  6. TOUGHMAC E [Concomitant]
     Dosage: UNK
     Route: 048
     Dates: start: 20090107
  7. MUCOSOLVAN [Concomitant]
     Indication: BRONCHITIS
     Dosage: UNK
     Route: 048
     Dates: start: 20090401
  8. HIRUDOID [Concomitant]
     Dosage: UNK
     Route: 062
     Dates: start: 20081220
  9. GARASONE [Concomitant]
     Dosage: UNK
     Route: 062
     Dates: start: 20081117

REACTIONS (1)
  - NEPHROTIC SYNDROME [None]
